FAERS Safety Report 6601804-7 (Version None)
Quarter: 2010Q1

REPORT INFORMATION
  Report Type: 
  Country: None (occurrence: None)
  Receive Date: 20100218
  Receipt Date: 20100202
  Transmission Date: 20100710
  Serious: Yes (Life-Threatening, Hospitalization)
  Sender: FDA-Public Use
  Company Number: DSM-2010-00166

PATIENT
  Age: 87 Year
  Sex: Female

DRUGS (10)
  1. VOTUM PLUS (HYDROCHLOROTHIAZIDE, OLMESARTAN MEDOXOMIL) (TABLET)  (HYDR [Suspect]
     Indication: HYPERTENSION
     Dosage: 20/12.5 MG, ORAL
     Dates: end: 20090818
  2. VOTUM PLUS (HYDROCHLOROTHIAZIDE, OLMESARTAN MEDOXOMIL) (TABLET)  (HYDR [Suspect]
     Indication: HYPERTENSION
     Dosage: 20/12.5 MG, ORAL
     Dates: start: 20090801
  3. TORASEMIDE (TORASEMIDE) (TORASEMIDE) [Suspect]
     Indication: CARDIAC FAILURE CHRONIC
     Dosage: 5 MG, ORAL, 2.5 MG, ORAL
     Route: 048
     Dates: end: 20090818
  4. TORASEMIDE (TORASEMIDE) (TORASEMIDE) [Suspect]
     Indication: CARDIAC FAILURE CHRONIC
     Dosage: 5 MG, ORAL, 2.5 MG, ORAL
     Route: 048
     Dates: start: 20090801
  5. DIGIMED (DIGITOXIN) (DIGITOXIN) [Suspect]
     Indication: CARDIAC FAILURE CHRONIC
     Dosage: 0.07 MG, ORAL, 0.5 MG (NO INTAKE ON WEEKENDS), ORAL
     Route: 048
     Dates: end: 20090818
  6. DIGIMED (DIGITOXIN) (DIGITOXIN) [Suspect]
     Indication: CARDIAC FAILURE CHRONIC
     Dosage: 0.07 MG, ORAL, 0.5 MG (NO INTAKE ON WEEKENDS), ORAL
     Route: 048
     Dates: start: 20090801
  7. BIOHEXAL (BISOPROLOL HEMIFUMARATE) (BISOPROLOL HEMIFUMARATE) [Concomitant]
  8. MOXOBETA (MOXONIDINE) (MOXONIDINE) [Concomitant]
  9. LEVOTHYROXINE SODIUM [Concomitant]
  10. HERZ ASS (ACETYLSALICYLIC ACID) (ACETYLSALICYLIC ACID) [Concomitant]

REACTIONS (7)
  - DIARRHOEA [None]
  - DIZZINESS [None]
  - GENERAL PHYSICAL CONDITION ABNORMAL [None]
  - NAUSEA [None]
  - RENAL FAILURE [None]
  - THERAPEUTIC AGENT TOXICITY [None]
  - VOMITING [None]
